FAERS Safety Report 9178240 (Version 2)
Quarter: 2013Q2

REPORT INFORMATION
  Report Type: Spontaneous
  Country: DE (occurrence: DE)
  Receive Date: 20130321
  Receipt Date: 20130419
  Transmission Date: 20140414
  Serious: No
  Sender: FDA-Public Use
  Company Number: DE-ELI_LILLY_AND_COMPANY-DE201303004126

PATIENT
  Age: 41 Year
  Sex: Male

DRUGS (2)
  1. CIALIS [Suspect]
     Indication: ERECTILE DYSFUNCTION
     Dosage: 5 MG, UNKNOWN
     Route: 048
     Dates: start: 20120403, end: 20130221
  2. CIALIS [Suspect]
     Dosage: 20 MG, PRN

REACTIONS (2)
  - Ventricular extrasystoles [Recovered/Resolved]
  - Tachycardia [Recovered/Resolved]
